FAERS Safety Report 21777346 (Version 1)
Quarter: 2022Q4

REPORT INFORMATION
  Report Type: Spontaneous
  Country: US (occurrence: US)
  Receive Date: 20221226
  Receipt Date: 20221226
  Transmission Date: 20230113
  Serious: Yes (Other)
  Sender: FDA-Public Use
  Company Number: US-COLLEGIUM PHARMACEUTICAL, INC.-2022CGM00429

PATIENT
  Sex: Female
  Weight: 95.238 kg

DRUGS (2)
  1. NUCYNTA [Suspect]
     Active Substance: TAPENTADOL HYDROCHLORIDE
     Dosage: 100 MG EVERY 8 HOURS AS NEEDED FOR PAIN
     Route: 048
     Dates: start: 20220617, end: 2022
  2. TRAMADOL [Concomitant]
     Active Substance: TRAMADOL

REACTIONS (9)
  - Hallucination, visual [Recovered/Resolved]
  - Gait disturbance [Recovered/Resolved]
  - Head lag abnormal [Recovered/Resolved]
  - Feeling abnormal [Recovered/Resolved]
  - Ear discomfort [Recovered/Resolved]
  - Miosis [Recovered/Resolved]
  - Headache [Recovered/Resolved]
  - Dysarthria [Recovered/Resolved]
  - Nausea [Recovered/Resolved]

NARRATIVE: CASE EVENT DATE: 20220101
